FAERS Safety Report 25820560 (Version 1)
Quarter: 2025Q3

REPORT INFORMATION
  Report Type: Spontaneous
  Country: EU (occurrence: EU)
  Receive Date: 20250919
  Receipt Date: 20250919
  Transmission Date: 20251021
  Serious: Yes (Death, Life-Threatening)
  Sender: ADAPTIS PHARMA INDIA
  Company Number: EU-Adaptis Pharma Private Limited-2184838

PATIENT
  Age: 71 Year
  Sex: Male

DRUGS (2)
  1. IBUPROFEN [Suspect]
     Active Substance: IBUPROFEN
     Indication: Pyrexia
  2. ACETAMINOPHEN [Concomitant]
     Active Substance: ACETAMINOPHEN

REACTIONS (2)
  - Toxic epidermal necrolysis [Fatal]
  - Self-medication [Unknown]
